FAERS Safety Report 14405484 (Version 2)
Quarter: 2018Q1

REPORT INFORMATION
  Report Type: Spontaneous
  Country: US (occurrence: US)
  Receive Date: 20180118
  Receipt Date: 20180314
  Transmission Date: 20180509
  Serious: No
  Sender: FDA-Public Use
  Company Number: US-PFIZER INC-2018021014

PATIENT
  Age: 69 Year
  Sex: Male

DRUGS (1)
  1. INSPRA [Suspect]
     Active Substance: EPLERENONE
     Indication: GYNAECOMASTIA
     Dosage: 25 MG, UNK
     Dates: end: 201801

REACTIONS (2)
  - Swelling [Recovered/Resolved]
  - Malaise [Unknown]
